FAERS Safety Report 14586454 (Version 4)
Quarter: 2018Q2

REPORT INFORMATION
  Report Type: Report from Study
  Country: US (occurrence: US)
  Receive Date: 20180301
  Receipt Date: 20180419
  Transmission Date: 20180711
  Serious: No
  Sender: FDA-Public Use
  Company Number: US-AMGEN-USASL2018027705

PATIENT
  Age: 35 Year
  Sex: Male

DRUGS (2)
  1. METHOTREXATE. [Concomitant]
     Active Substance: METHOTREXATE
     Indication: PRODUCT USED FOR UNKNOWN INDICATION
     Dosage: UNK
     Route: 065
  2. ENBREL [Suspect]
     Active Substance: ETANERCEPT
     Indication: RHEUMATOID ARTHRITIS
     Dosage: 50 MG, QWK
     Route: 065
     Dates: start: 201802

REACTIONS (17)
  - Lethargy [Unknown]
  - Nasal congestion [Unknown]
  - Genital disorder male [Unknown]
  - Psoriasis [Unknown]
  - Injection site mass [Recovering/Resolving]
  - Injection site swelling [Unknown]
  - Rash papular [Unknown]
  - Abdominal distension [Not Recovered/Not Resolved]
  - Injection site erythema [Recovering/Resolving]
  - Malaise [Unknown]
  - Injection site pain [Unknown]
  - Pollakiuria [Not Recovered/Not Resolved]
  - Injection site pruritus [Recovering/Resolving]
  - Injection site warmth [Recovering/Resolving]
  - Hypersomnia [Unknown]
  - Pain [Unknown]
  - Injection site discolouration [Not Recovered/Not Resolved]

NARRATIVE: CASE EVENT DATE: 2018
